FAERS Safety Report 17669715 (Version 1)
Quarter: 2020Q2

REPORT INFORMATION
  Report Type: Spontaneous
  Country: CA (occurrence: CA)
  Receive Date: 20200415
  Receipt Date: 20200415
  Transmission Date: 20200713
  Serious: Yes (Other)
  Sender: FDA-Public Use
  Company Number: CA-B.I. PHARMACEUTICALS,INC./RIDGEFIELD-2020-BI-019797

PATIENT
  Age: 73 Year
  Sex: Female
  Weight: 88.45 kg

DRUGS (1)
  1. MICARDIS [Suspect]
     Active Substance: TELMISARTAN
     Indication: HYPERTENSION
     Route: 065

REACTIONS (3)
  - Abdominal distension [Unknown]
  - Product substitution issue [Unknown]
  - Abdominal discomfort [Unknown]
